FAERS Safety Report 25060166 (Version 5)
Quarter: 2025Q2

REPORT INFORMATION
  Report Type: Spontaneous
  Country: IT (occurrence: IT)
  Receive Date: 20250310
  Receipt Date: 20250612
  Transmission Date: 20250716
  Serious: Yes (Hospitalization, Other)
  Sender: NOVARTIS
  Company Number: IT-002147023-NVSC2025IT040136

PATIENT
  Age: 0 Year
  Sex: Female
  Weight: 3.062 kg

DRUGS (5)
  1. LEQVIO [Suspect]
     Active Substance: INCLISIRAN SODIUM
     Indication: Foetal exposure during pregnancy
     Route: 050
  2. LEQVIO [Suspect]
     Active Substance: INCLISIRAN SODIUM
     Route: 050
     Dates: start: 20220922, end: 20221222
  3. ROSUVASTATIN [Suspect]
     Active Substance: ROSUVASTATIN
     Indication: Foetal exposure during pregnancy
     Route: 050
  4. EZETIMIBE [Suspect]
     Active Substance: EZETIMIBE
     Indication: Foetal exposure during pregnancy
     Route: 050
  5. FOLIC ACID [Suspect]
     Active Substance: FOLIC ACID
     Indication: Foetal exposure during pregnancy
     Route: 050

REACTIONS (3)
  - Bronchitis [Recovered/Resolved]
  - Failure to thrive [Unknown]
  - Maternal exposure before pregnancy [Unknown]

NARRATIVE: CASE EVENT DATE: 20241201
